FAERS Safety Report 8544208 (Version 6)
Quarter: 2013Q1

REPORT INFORMATION
  Report Type: Report from Study
  Country: FR (occurrence: FR)
  Receive Date: 20120503
  Receipt Date: 20130109
  Transmission Date: 20140127
  Serious: Yes (Hospitalization)
  Sender: FDA-Public Use
  Company Number: PHHO2012FR006501

PATIENT
  Sex: 0

DRUGS (6)
  1. EVEROLIMUS [Suspect]
     Indication: RENAL TRANSPLANT
     Dosage: 5 MG, QD
     Route: 048
     Dates: start: 20120402, end: 20120417
  2. CELLCEPT [Suspect]
     Indication: RENAL TRANSPLANT
     Dosage: 500 MG, QD
     Route: 048
     Dates: start: 20120327, end: 20120417
  3. CORTANCYL [Suspect]
     Indication: RENAL TRANSPLANT
     Dosage: 10 MG, QD
     Route: 048
     Dates: start: 20120327
  4. PROGRAF [Suspect]
     Dosage: 12 MG, QD
     Dates: start: 20120418
  5. VALCYTE [Concomitant]
  6. FUNGIZONE [Concomitant]

REACTIONS (9)
  - Pancytopenia [Recovering/Resolving]
  - Neutropenia [Not Recovered/Not Resolved]
  - Leukopenia [Not Recovered/Not Resolved]
  - Anaemia [Not Recovered/Not Resolved]
  - Thrombocytopenia [Not Recovered/Not Resolved]
  - Wound evisceration [Not Recovered/Not Resolved]
  - Enterococcal sepsis [Recovering/Resolving]
  - Renal impairment [Recovering/Resolving]
  - Pyelonephritis [Recovered/Resolved]
